FAERS Safety Report 25432228 (Version 1)
Quarter: 2025Q2

REPORT INFORMATION
  Report Type: Spontaneous
  Country: BR (occurrence: BR)
  Receive Date: 20250613
  Receipt Date: 20250613
  Transmission Date: 20250717
  Serious: Yes (Other)
  Sender: ORGANON
  Company Number: BR-ORGANON-O2506BRA000718

PATIENT
  Sex: Female

DRUGS (1)
  1. ETONOGESTREL [Suspect]
     Active Substance: ETONOGESTREL
     Route: 059
     Dates: start: 20231128, end: 20250530

REACTIONS (6)
  - Vaginal haemorrhage [Unknown]
  - Abdominal pain [Unknown]
  - Hormone level abnormal [Unknown]
  - Device breakage [Recovered/Resolved]
  - Complication of device removal [Recovered/Resolved]
  - Device implantation error [Recovered/Resolved]

NARRATIVE: CASE EVENT DATE: 20231128
